APPROVED DRUG PRODUCT: RETISERT
Active Ingredient: FLUOCINOLONE ACETONIDE
Strength: 0.59MG
Dosage Form/Route: IMPLANT;INTRAVITREAL
Application: N021737 | Product #001
Applicant: BAUSCH AND LOMB INC
Approved: Apr 8, 2005 | RLD: Yes | RS: Yes | Type: RX